FAERS Safety Report 13037372 (Version 1)
Quarter: 2016Q4

REPORT INFORMATION
  Report Type: Spontaneous
  Country: US (occurrence: US)
  Receive Date: 20161216
  Receipt Date: 20161216
  Transmission Date: 20170207
  Serious: Yes (Hospitalization)
  Sender: FDA-Public Use
  Company Number: US-RELYPSA-RLY2016004208

PATIENT
  Sex: Male

DRUGS (9)
  1. VELTASSA [Suspect]
     Active Substance: PATIROMER
     Indication: HYPERKALAEMIA
     Dosage: 8.4 G, QD
     Route: 048
     Dates: start: 20160728, end: 2016
  2. HYDROCORTISONE. [Concomitant]
     Active Substance: HYDROCORTISONE
  3. FAMOTIDINE. [Concomitant]
     Active Substance: FAMOTIDINE
  4. RENAGEL [Concomitant]
     Active Substance: SEVELAMER HYDROCHLORIDE
  5. PREPARATION H HYDROCORTISONE [Concomitant]
     Active Substance: HYDROCORTISONE
  6. NITROSTAT [Concomitant]
     Active Substance: NITROGLYCERIN
  7. ECOTRIN [Concomitant]
     Active Substance: ASPIRIN
  8. NEXIUM [Concomitant]
     Active Substance: ESOMEPRAZOLE MAGNESIUM
  9. LEVEMIR [Concomitant]
     Active Substance: INSULIN DETEMIR

REACTIONS (1)
  - Hospitalisation [Not Recovered/Not Resolved]
